FAERS Safety Report 11396809 (Version 1)
Quarter: 2015Q3

REPORT INFORMATION
  Report Type: Spontaneous
  Country: US (occurrence: US)
  Receive Date: 20150819
  Receipt Date: 20150819
  Transmission Date: 20151125
  Serious: Yes (Life-Threatening, Hospitalization)
  Sender: FDA-Public Use
  Company Number: US-MALLINCKRODT-T201503814

PATIENT
  Age: 14 Year
  Sex: Male

DRUGS (1)
  1. GABLOFEN [Suspect]
     Active Substance: BACLOFEN
     Indication: MUSCLE SPASTICITY
     Dosage: 800 MCG/DAY
     Route: 037

REACTIONS (4)
  - Cardio-respiratory arrest [Recovered/Resolved]
  - Drug administration error [Unknown]
  - Overdose [Unknown]
  - Device issue [Unknown]

NARRATIVE: CASE EVENT DATE: 20150803
